FAERS Safety Report 22075100 (Version 15)
Quarter: 2025Q1

REPORT INFORMATION
  Report Type: Report from Study
  Country: US (occurrence: US)
  Receive Date: 20230308
  Receipt Date: 20250329
  Transmission Date: 20250409
  Serious: Yes (Hospitalization, Other)
  Sender: TAKEDA
  Company Number: US-TAKEDA-US201820293

PATIENT
  Age: 60 Year
  Sex: Female
  Weight: 76 kg

DRUGS (48)
  1. HUMAN IMMUNOGLOBULIN G [Suspect]
     Active Substance: HUMAN IMMUNOGLOBULIN G
     Indication: Primary immunodeficiency syndrome
     Dosage: 12 GRAM, 1/WEEK
  2. HUMAN IMMUNOGLOBULIN G [Suspect]
     Active Substance: HUMAN IMMUNOGLOBULIN G
     Indication: Immunodeficiency common variable
  3. HYQVIA [Suspect]
     Active Substance: HUMAN IMMUNOGLOBULIN G\HYALURONIDASE (HUMAN RECOMBINANT)
     Indication: Primary immunodeficiency syndrome
     Dosage: 30 GRAM, Q3WEEKS
     Dates: start: 20220727
  4. HYQVIA [Suspect]
     Active Substance: HUMAN IMMUNOGLOBULIN G\HYALURONIDASE (HUMAN RECOMBINANT)
     Indication: Immunodeficiency common variable
  5. DIFLUCAN [Suspect]
     Active Substance: FLUCONAZOLE
     Indication: Mycotic allergy
  6. ACETAMINOPHEN [Concomitant]
     Active Substance: ACETAMINOPHEN
  7. EPINEPHRINE [Concomitant]
     Active Substance: EPINEPHRINE
  8. MELOXICAM [Concomitant]
     Active Substance: MELOXICAM
  9. VITAMIN B [Concomitant]
     Active Substance: VITAMIN B
  10. POTASSIUM CHLORIDE [Concomitant]
     Active Substance: POTASSIUM CHLORIDE
  11. TELMISARTAN [Concomitant]
     Active Substance: TELMISARTAN
  12. SINGULAIR [Concomitant]
     Active Substance: MONTELUKAST SODIUM
  13. TIZANIDINE HYDROCHLORIDE [Concomitant]
     Active Substance: TIZANIDINE HYDROCHLORIDE
  14. ROSUVASTATIN CALCIUM [Concomitant]
     Active Substance: ROSUVASTATIN CALCIUM
  15. LEVOTHYROXINE [Concomitant]
     Active Substance: LEVOTHYROXINE
  16. BREO ELLIPTA [Concomitant]
     Active Substance: FLUTICASONE FUROATE\VILANTEROL TRIFENATATE
  17. PROTONIX [Concomitant]
     Active Substance: PANTOPRAZOLE SODIUM
  18. CHOLESTYRAMINE [Concomitant]
     Active Substance: CHOLESTYRAMINE
  19. SELENIUM [Concomitant]
     Active Substance: SELENIUM
  20. VITAMIN E [Concomitant]
     Active Substance: .ALPHA.-TOCOPHEROL
  21. GABAPENTIN [Concomitant]
     Active Substance: GABAPENTIN
  22. ALBUTEROL SULFATE [Concomitant]
     Active Substance: ALBUTEROL SULFATE
  23. LIDOCAINE [Concomitant]
     Active Substance: LIDOCAINE
  24. TRAMADOL HCL [Concomitant]
     Active Substance: TRAMADOL HYDROCHLORIDE
  25. METFORMIN HYDROCHLORIDE [Concomitant]
     Active Substance: METFORMIN HYDROCHLORIDE
  26. CHLORHEXIDINE GLUCONATE [Concomitant]
     Active Substance: CHLORHEXIDINE GLUCONATE
  27. IPRATROPIUM BROMIDE [Concomitant]
     Active Substance: IPRATROPIUM BROMIDE
  28. ZINC [Concomitant]
     Active Substance: ZINC
  29. DIPHENHYDRAMINE HYDROCHLORIDE [Concomitant]
     Active Substance: DIPHENHYDRAMINE HYDROCHLORIDE
  30. DOXAZOSIN MESYLATE [Concomitant]
     Active Substance: DOXAZOSIN MESYLATE
  31. DICYCLOMINE HYDROCHLORIDE [Concomitant]
     Active Substance: DICYCLOMINE HYDROCHLORIDE
  32. XYZAL [Concomitant]
     Active Substance: LEVOCETIRIZINE DIHYDROCHLORIDE
  33. METHENAMINE MANDELATE [Concomitant]
     Active Substance: METHENAMINE MANDELATE
  34. SUMATRIPTAN SUCCINATE [Concomitant]
     Active Substance: SUMATRIPTAN SUCCINATE
  35. VITAMIN D3 [Concomitant]
     Active Substance: CHOLECALCIFEROL
  36. SODIUM CHLORIDE [Concomitant]
     Active Substance: SODIUM CHLORIDE
  37. LOSARTAN POTASSIUM [Concomitant]
     Active Substance: LOSARTAN POTASSIUM
  38. CALCIUM [Concomitant]
     Active Substance: CALCIUM
  39. CLONIDINE HYDROCHLORIDE [Concomitant]
     Active Substance: CLONIDINE HYDROCHLORIDE
  40. CUTAQUIG [Concomitant]
     Active Substance: HUMAN IMMUNOGLOBULIN G
  41. DIPHENHYDRAMINE [Concomitant]
     Active Substance: DIPHENHYDRAMINE
  42. BIOTIN [Concomitant]
     Active Substance: BIOTIN
  43. DICYCLOMINE [Concomitant]
     Active Substance: DICYCLOMINE HYDROCHLORIDE
  44. VITAMIN B12 [Concomitant]
     Active Substance: CYANOCOBALAMIN
  45. METFORMIN [Concomitant]
     Active Substance: METFORMIN HYDROCHLORIDE
  46. TRAMADOL [Concomitant]
     Active Substance: TRAMADOL
  47. TIZANIDINE [Concomitant]
     Active Substance: TIZANIDINE
  48. ROSUVASTATIN [Concomitant]
     Active Substance: ROSUVASTATIN

REACTIONS (30)
  - Pancreatitis relapsing [Unknown]
  - Paranasal sinus hypersecretion [Unknown]
  - COVID-19 [Unknown]
  - Sinus disorder [Unknown]
  - Product dose omission issue [Unknown]
  - Insurance issue [Unknown]
  - Device power source issue [Unknown]
  - Blood pressure abnormal [Unknown]
  - Dermatitis contact [Unknown]
  - Urinary tract infection [Unknown]
  - Cystitis [Unknown]
  - Insulin resistance [Unknown]
  - Inflammation [Unknown]
  - Hyperinsulinaemia [Unknown]
  - Seasonal allergy [Unknown]
  - Complication associated with device [Unknown]
  - Arthropathy [Unknown]
  - Product use issue [Unknown]
  - Product distribution issue [Unknown]
  - Sinusitis [Not Recovered/Not Resolved]
  - Heart rate increased [Unknown]
  - Rash pruritic [Unknown]
  - Oropharyngeal pain [Unknown]
  - Infusion site bruising [Unknown]
  - Blood pressure increased [Unknown]
  - Rash [Unknown]
  - Infusion site pruritus [Unknown]
  - Dyspnoea [Unknown]
  - Abdominal pain [Recovered/Resolved]
  - Infusion site pain [Unknown]

NARRATIVE: CASE EVENT DATE: 20220727
